FAERS Safety Report 20085503 (Version 1)
Quarter: 2021Q4

REPORT INFORMATION
  Report Type: Other
  Country: CA (occurrence: CA)
  Receive Date: 20211118
  Receipt Date: 20211118
  Transmission Date: 20220303
  Serious: Yes (Life-Threatening, Hospitalization, Other)
  Sender: FDA-Public Use
  Company Number: CA-ASTELLAS-2021US043689

PATIENT
  Age: 35 Year
  Sex: Female

DRUGS (1)
  1. PROGRAF [Suspect]
     Active Substance: TACROLIMUS
     Indication: Lung transplant
     Dosage: UNK, UNKNOWN FREQ.
     Route: 048

REACTIONS (2)
  - Headache [Unknown]
  - Reversible cerebral vasoconstriction syndrome [Unknown]
